FAERS Safety Report 19050359 (Version 1)
Quarter: 2021Q1

REPORT INFORMATION
  Report Type: Spontaneous
  Country: US (occurrence: US)
  Receive Date: 20210323
  Receipt Date: 20210323
  Transmission Date: 20210420
  Serious: Yes (Life-Threatening, Disabling)
  Sender: FDA-Public Use
  Company Number: None

PATIENT
  Age: 51 Year
  Sex: Female
  Weight: 50.85 kg

DRUGS (2)
  1. ATIVAN [Suspect]
     Active Substance: LORAZEPAM
     Indication: INSOMNIA
     Route: 048
     Dates: start: 20110202, end: 20140531
  2. ATHLETIC GREENS [Concomitant]

REACTIONS (14)
  - Insomnia [None]
  - Weight decreased [None]
  - Tremor [None]
  - Skin burning sensation [None]
  - Amnesia [None]
  - Fall [None]
  - Feeling of despair [None]
  - Cerebrovascular accident [None]
  - Withdrawal syndrome [None]
  - Photophobia [None]
  - Hyperacusis [None]
  - Therapy change [None]
  - Anger [None]
  - Loss of control of legs [None]

NARRATIVE: CASE EVENT DATE: 20110202
